FAERS Safety Report 10129714 (Version 1)
Quarter: 2014Q2

REPORT INFORMATION
  Report Type: Report from Study
  Country: IT (occurrence: IT)
  Receive Date: 20140428
  Receipt Date: 20140428
  Transmission Date: 20141212
  Serious: Yes (Other)
  Sender: FDA-Public Use
  Company Number: IT-INCYTE CORPORATION-2014IN001094

PATIENT
  Age: 65 Year
  Sex: Male
  Weight: 58 kg

DRUGS (7)
  1. INC424 [Suspect]
     Indication: MYELOFIBROSIS
     Dosage: 15 MG, BID (CONTINUED ON ADDITIONAL INFORMATION PAGE)(AT THE TIME OF SAE 10 MG + 5 MG/DIE)
     Route: 065
     Dates: start: 20120629
  2. GABAPENTIN [Concomitant]
     Dosage: UNK
     Dates: start: 20111220
  3. ALLOPURINOL [Concomitant]
     Dosage: UNK
     Dates: start: 20111220
  4. FOLIN                              /00024201/ [Concomitant]
     Dosage: UNK
     Dates: start: 20121119
  5. NOVALGINA [Concomitant]
     Dosage: UNK
     Dates: start: 20130315
  6. EPREX [Concomitant]
     Dosage: UNK
     Dates: start: 20130315
  7. PANTOPRAZOLE                       /01263204/ [Concomitant]
     Dosage: UNK
     Dates: start: 20130712

REACTIONS (1)
  - Basal cell carcinoma [Recovered/Resolved]
